FAERS Safety Report 9980732 (Version 1)
Quarter: 2014Q1

REPORT INFORMATION
  Report Type: Spontaneous
  Country: US (occurrence: None)
  Receive Date: 20140305
  Receipt Date: 20140305
  Transmission Date: 20141002
  Serious: Yes (Life-Threatening, Hospitalization)
  Sender: FDA-Public Use
  Company Number: None

PATIENT
  Age: 71 Year
  Sex: Female
  Weight: 130 kg

DRUGS (8)
  1. FERAHEME [Suspect]
     Indication: IRON DEFICIENCY ANAEMIA
     Route: 042
     Dates: start: 20140228, end: 20140228
  2. DIPHENHYDRAMINE [Concomitant]
  3. HYDROCORTISONE SODIUM SUCCINATE [Concomitant]
  4. METHYLPRENISOLONE SODIUM SUCCUINAATE [Concomitant]
  5. LEVOTHYROXINE [Concomitant]
  6. LOSARTAN-HYDROCHLOROTHIAZIDE [Concomitant]
  7. PRILOSEC OTC [Concomitant]
  8. ZYRTEC [Concomitant]

REACTIONS (6)
  - Dizziness [None]
  - Hypotension [None]
  - Diarrhoea [None]
  - Dyspnoea [None]
  - Flushing [None]
  - Wheezing [None]
